FAERS Safety Report 6253762-5 (Version None)
Quarter: 2009Q2

REPORT INFORMATION
  Report Type: 
  Country: None (occurrence: None)
  Receive Date: 20090630
  Receipt Date: 20090617
  Transmission Date: 20091009
  Serious: Yes (Hospitalization)
  Sender: FDA-Public Use
  Company Number: 2009-198925-NL

PATIENT
  Sex: Female

DRUGS (2)
  1. CHORIONIC GONADOTROPIN [Suspect]
     Indication: INFERTILITY FEMALE
     Dosage: DF,
  2. MENOTROPINS [Suspect]
     Dosage: DF

REACTIONS (8)
  - ABORTION MISSED [None]
  - ASCITES [None]
  - DRUG EXPOSURE DURING PREGNANCY [None]
  - INTRA-UTERINE DEATH [None]
  - OVARIAN CYST [None]
  - OVARIAN ENLARGEMENT [None]
  - OVARIAN HYPERSTIMULATION SYNDROME [None]
  - OVARIAN TORSION [None]
